FAERS Safety Report 5117648-1 (Version None)
Quarter: 2006Q3

REPORT INFORMATION
  Report Type: 
  Country: None (occurrence: None)
  Receive Date: 20060926
  Receipt Date: 20060905
  Transmission Date: 20061208
  Serious: Yes (Hospitalization)
  Sender: FDA-Public Use
  Company Number: CA200609002405

PATIENT
  Age: 92 Year
  Sex: Female

DRUGS (11)
  1. FORTEO [Suspect]
     Indication: OSTEOPOROSIS
     Dosage: 20 UG, DAILY (1/D), UNK
     Dates: start: 20060110
  2. FORTEO [Concomitant]
  3. DOCUSATE SODIUM (DOCUSATE SODIUM) [Concomitant]
  4. TYLENOL W/ CODEINE NO. 3 [Concomitant]
  5. POTASSIUM CHLORIDE [Concomitant]
  6. APO-FUROSEMIDE (FUROSEMIDE) [Concomitant]
  7. PREVACID [Concomitant]
  8. VITAMIN D (ERGOCALCIFEROL0 [Concomitant]
  9. CALCIUM (CALCIUM) [Concomitant]
  10. CLAVULIN [Concomitant]
  11. ZANTAC [Concomitant]

REACTIONS (4)
  - COLONOSCOPY [None]
  - INFECTED INSECT BITE [None]
  - INFLAMMATION [None]
  - OEDEMA PERIPHERAL [None]
